FAERS Safety Report 8740875 (Version 2)
Quarter: 2012Q4

REPORT INFORMATION
  Report Type: 
  Country: JP (occurrence: JP)
  Receive Date: 20120823
  Receipt Date: 20121015
  Transmission Date: 20130627
  Serious: Yes (Hospitalization)
  Sender: FDA-Public Use
  Company Number: JP-009507513-2012SP030760

PATIENT
  Age: 73 Year
  Sex: Female
  Weight: 55 kg

DRUGS (25)
  1. PEGINTRON [Suspect]
     Indication: HEPATITIS C
     Dosage: 1.5mcg/kg/week
     Route: 058
     Dates: start: 20120406, end: 20120921
  2. REBETOL [Suspect]
     Indication: HEPATITIS C
     Dosage: 400 mg, QD
     Route: 048
     Dates: start: 20120406, end: 20120409
  3. REBETOL [Suspect]
     Dosage: 200 mg, qd
     Route: 048
     Dates: start: 20120410, end: 20120413
  4. REBETOL [Suspect]
     Dosage: 200 mg, QOD
     Route: 048
     Dates: start: 20120414, end: 20120612
  5. REBETOL [Suspect]
     Dosage: 200 mg, qd
     Route: 048
     Dates: start: 20120613, end: 20120921
  6. TELAVIC [Suspect]
     Indication: HEPATITIS C
     Dosage: 1500 mg, qd
     Route: 048
     Dates: start: 20120406, end: 20120409
  7. TELAVIC [Suspect]
     Dosage: 1000 mg, qd
     Route: 048
     Dates: start: 20120410, end: 20120413
  8. TELAVIC [Suspect]
     Dosage: 500 mg, qd
     Route: 048
     Dates: start: 20120414, end: 20120515
  9. TELAVIC [Suspect]
     Dosage: 750 mg, qd
     Route: 048
     Dates: start: 20120516, end: 20120517
  10. TELAVIC [Suspect]
     Dosage: 500 mg, qd
     Route: 048
     Dates: start: 20120518, end: 20120601
  11. TELAVIC [Suspect]
     Dosage: 750 UNK, UNK
     Route: 048
     Dates: start: 20120602, end: 20120629
  12. NEXIUM [Concomitant]
     Indication: GASTRIC ULCER
     Dosage: 20 mg, qd
     Route: 048
  13. GASLON N [Concomitant]
     Indication: GASTRIC ULCER
     Dosage: 4 mg, qd
     Route: 048
  14. GASLON N [Concomitant]
     Route: 048
  15. MICOMBI [Concomitant]
     Indication: HYPERTENSION
     Dosage: 1 DF, qd
     Route: 048
  16. MICOMBI [Concomitant]
     Route: 048
  17. AMARYL [Concomitant]
     Indication: DIABETES MELLITUS
     Dosage: 0.5 mg, qd
     Route: 048
  18. AMARYL [Concomitant]
     Route: 048
  19. ALLEGRA [Concomitant]
     Indication: PROPHYLAXIS
     Dosage: 120 mg, Once
     Route: 048
     Dates: start: 20120406, end: 20120809
  20. HIRUDOID [Concomitant]
     Indication: PROPHYLAXIS
     Dosage: Proper quantity
     Route: 061
     Dates: start: 20120406
  21. CONIEL [Concomitant]
     Indication: HYPERTENSION
     Dosage: 4 mg, qd
     Route: 048
     Dates: start: 2012, end: 20120503
  22. CONIEL [Concomitant]
     Dosage: 8 mg, Once
     Route: 048
     Dates: start: 2012, end: 20120427
  23. CONIEL [Concomitant]
     Dosage: 4 mg, Once
     Route: 048
     Dates: start: 20120428, end: 20120503
  24. DEXTROSE (+) ELECTROLYTES (UNSPECIFIED) (+) SODIUM LACTATE [Concomitant]
     Dosage: 1000 ml, QD
     Route: 042
     Dates: start: 20120409
  25. SOLDEM 3A [Concomitant]
     Route: 042
     Dates: start: 20120409

REACTIONS (2)
  - Renal disorder [Recovered/Resolved]
  - Decreased appetite [None]
